FAERS Safety Report 22149135 (Version 1)
Quarter: 2023Q1

REPORT INFORMATION
  Report Type: Spontaneous
  Country: US (occurrence: US)
  Receive Date: 20230329
  Receipt Date: 20230329
  Transmission Date: 20230417
  Serious: Yes (Other)
  Sender: FDA-Public Use
  Company Number: US-BRISTOL-MYERS SQUIBB COMPANY-2023-043973

PATIENT
  Age: 74 Year
  Sex: Male

DRUGS (7)
  1. NIVOLUMAB [Suspect]
     Active Substance: NIVOLUMAB
     Indication: Renal cell carcinoma
  2. NIVOLUMAB [Suspect]
     Active Substance: NIVOLUMAB
     Indication: Chronic myeloid leukaemia
  3. AXITINIB [Suspect]
     Active Substance: AXITINIB
     Indication: Renal cell carcinoma
  4. AXITINIB [Suspect]
     Active Substance: AXITINIB
     Indication: Chronic myeloid leukaemia
  5. IMATINIB [Suspect]
     Active Substance: IMATINIB
     Indication: Renal cell carcinoma
  6. IMATINIB [Suspect]
     Active Substance: IMATINIB
     Indication: Chronic myeloid leukaemia
  7. OMEPRAZOLE [Concomitant]
     Active Substance: OMEPRAZOLE
     Indication: Product used for unknown indication
     Dosage: 40

REACTIONS (1)
  - Tubulointerstitial nephritis [Recovering/Resolving]
